FAERS Safety Report 5746610-0 (Version None)
Quarter: 2008Q2

REPORT INFORMATION
  Report Type: 
  Country: None (occurrence: None)
  Receive Date: 20080522
  Receipt Date: 20080507
  Transmission Date: 20081010
  Serious: Yes (Other)
  Sender: FDA-Public Use
  Company Number: US-JNJFOC-20080501645

PATIENT
  Sex: Female
  Weight: 47.63 kg

DRUGS (3)
  1. CONCERTA [Suspect]
     Indication: ATTENTION DEFICIT/HYPERACTIVITY DISORDER
     Route: 048
  2. THORAZINE [Concomitant]
     Indication: BIPOLAR DISORDER
  3. CLONADINE [Concomitant]
     Indication: BIPOLAR DISORDER

REACTIONS (2)
  - HALLUCINATION [None]
  - WRONG TECHNIQUE IN DRUG USAGE PROCESS [None]
